FAERS Safety Report 8242216-2 (Version None)
Quarter: 2012Q1

REPORT INFORMATION
  Report Type: 
  Country: None (occurrence: None)
  Receive Date: 20120314
  Receipt Date: 20110523
  Transmission Date: 20120608
  Serious: Yes (Disabling, Other)
  Sender: FDA-Public Use
  Company Number: PHHY2011US35751

PATIENT
  Age: 32 Year
  Sex: Male

DRUGS (3)
  1. SEROQUEL [Concomitant]
  2. FANAPT [Suspect]
     Dosage: 6 MG, BID, ORAL
     Route: 048
     Dates: start: 20110405
  3. CITALOPRAM HYDROBROMIDE [Concomitant]

REACTIONS (1)
  - ERECTILE DYSFUNCTION [None]
